FAERS Safety Report 24948398 (Version 6)
Quarter: 2025Q3

REPORT INFORMATION
  Report Type: Other
  Country: US (occurrence: US)
  Receive Date: 20250210
  Receipt Date: 20250710
  Transmission Date: 20251020
  Serious: No
  Sender: TRAVERE THERAPEUTICS
  Company Number: US-TRAVERE-2025TVT00144

PATIENT
  Age: 48 Year
  Sex: Male

DRUGS (3)
  1. FILSPARI [Suspect]
     Active Substance: SPARSENTAN
     Indication: IgA nephropathy
     Route: 048
     Dates: start: 20250124
  2. ALLOPURINOL [Concomitant]
     Active Substance: ALLOPURINOL
  3. TARPEYO [Concomitant]
     Active Substance: BUDESONIDE
     Dates: start: 20250411

REACTIONS (11)
  - Urine protein/creatinine ratio increased [Recovering/Resolving]
  - Blood creatinine increased [Unknown]
  - Blood urea increased [Unknown]
  - Blood sodium decreased [Unknown]
  - Blood chloride decreased [Unknown]
  - Blood triglycerides increased [Unknown]
  - High density lipoprotein decreased [Unknown]
  - Dizziness [None]
  - Blood pressure decreased [None]
  - Haemoglobin decreased [Unknown]
  - Vitamin D decreased [Unknown]

NARRATIVE: CASE EVENT DATE: 20250220
